FAERS Safety Report 10459533 (Version 1)
Quarter: 2014Q3

REPORT INFORMATION
  Report Type: Spontaneous
  Country: CH (occurrence: CH)
  Receive Date: 20140917
  Receipt Date: 20140917
  Transmission Date: 20150326
  Serious: Yes (Other)
  Sender: FDA-Public Use
  Company Number: PHHY2014CH117768

PATIENT
  Age: 49 Year
  Sex: Male

DRUGS (9)
  1. RIMSTAR [Suspect]
     Active Substance: ETHAMBUTOL\ISONIAZID\PYRAZINAMIDE\RIFAMYCIN
     Dosage: 150 MG, QID
     Route: 048
     Dates: start: 20140604
  2. NEXIUM [Concomitant]
     Active Substance: ESOMEPRAZOLE MAGNESIUM
     Dosage: 40 MG, QD
     Dates: start: 20140604
  3. WELLVONE [Concomitant]
     Active Substance: ATOVAQUONE
     Dosage: 750 MG, BID
     Route: 048
     Dates: start: 20140604
  4. DEXAMETHASONE. [Interacting]
     Active Substance: DEXAMETHASONE
     Dosage: 4 MG, QD
     Dates: start: 20140708
  5. PYRIDOXINE [Concomitant]
     Active Substance: PYRIDOXINE
     Dosage: 40 MG, QD
     Dates: start: 20140604
  6. CHOLECALCIFEROL [Concomitant]
     Active Substance: CHOLECALCIFEROL
     Dosage: 500 IU, QD
     Dates: start: 20140604
  7. FOLIC ACID. [Concomitant]
     Active Substance: FOLIC ACID
     Dosage: 5 MG, QD
     Dates: start: 20140604
  8. VIMPAT [Concomitant]
     Active Substance: LACOSAMIDE
     Dosage: 200 MG, BID
     Dates: start: 20140618
  9. ORFIRIL [Interacting]
     Active Substance: VALPROIC ACID
     Dosage: 500 MG, BID
     Route: 048
     Dates: start: 20140703

REACTIONS (3)
  - Drug ineffective [Recovered/Resolved]
  - Epilepsy [Recovered/Resolved]
  - Anticonvulsant drug level below therapeutic [Not Recovered/Not Resolved]

NARRATIVE: CASE EVENT DATE: 20140704
